FAERS Safety Report 7418820-8 (Version None)
Quarter: 2011Q2

REPORT INFORMATION
  Report Type: 
  Country: None (occurrence: None)
  Receive Date: 20110415
  Receipt Date: 20110413
  Transmission Date: 20111010
  Serious: Yes (Life-Threatening, Hospitalization, Disabling)
  Sender: FDA-Public Use
  Company Number: US-B.I. PHARMACEUTICALS,INC./RIDGEFIELD-2011-BP-01482BP

PATIENT
  Age: 89 Year
  Sex: Female
  Weight: 68.94 kg

DRUGS (5)
  1. PRADAXA [Suspect]
     Indication: ARRHYTHMIA SUPRAVENTRICULAR
     Dosage: 300 MG
     Dates: start: 20110112, end: 20110114
  2. ASPIRIN [Concomitant]
  3. PROTONIX [Concomitant]
  4. RAMIPRIL [Concomitant]
  5. DILTIAZEM [Concomitant]
     Dates: start: 20110112

REACTIONS (1)
  - CEREBROVASCULAR ACCIDENT [None]
